FAERS Safety Report 13697723 (Version 3)
Quarter: 2019Q1

REPORT INFORMATION
  Report Type: Report from Study
  Country: US (occurrence: US)
  Receive Date: 20170628
  Receipt Date: 20190314
  Transmission Date: 20190417
  Serious: Yes (Hospitalization, Other)
  Sender: FDA-Public Use
  Company Number: US-SA-2017SA105390

PATIENT
  Age: 43 Year
  Sex: Male

DRUGS (3)
  1. CIPROFLOXACIN. [Suspect]
     Active Substance: CIPROFLOXACIN
     Indication: URINARY TRACT INFECTION
     Dosage: UNK UNK,UNK
     Route: 065
  2. ALEMTUZUMAB [Suspect]
     Active Substance: ALEMTUZUMAB
     Dosage: 12 MG, QD
     Route: 041
     Dates: start: 20160411, end: 20160418
  3. ALEMTUZUMAB [Suspect]
     Active Substance: ALEMTUZUMAB
     Indication: MULTIPLE SCLEROSIS
     Dosage: 12 MG,QD
     Route: 041
     Dates: start: 20170425, end: 20170427

REACTIONS (11)
  - Fungal infection [Not Recovered/Not Resolved]
  - Urosepsis [Recovered/Resolved]
  - Upper respiratory tract infection [Recovered/Resolved]
  - Multiple sclerosis relapse [Unknown]
  - Drug monitoring procedure not performed [Not Recovered/Not Resolved]
  - Diarrhoea [Not Recovered/Not Resolved]
  - Unresponsive to stimuli [Unknown]
  - Bedridden [Unknown]
  - Mydriasis [Unknown]
  - Hallucination [Unknown]
  - Blood potassium decreased [Not Recovered/Not Resolved]

NARRATIVE: CASE EVENT DATE: 2017
